FAERS Safety Report 20623124 (Version 1)
Quarter: 2022Q1

REPORT INFORMATION
  Report Type: Spontaneous
  Country: US (occurrence: None)
  Receive Date: 20220322
  Receipt Date: 20220322
  Transmission Date: 20220423
  Serious: No
  Sender: FDA-Public Use
  Company Number: 2022A118638

PATIENT
  Sex: Female

DRUGS (14)
  1. DUPIXENT [Suspect]
     Active Substance: DUPILUMAB
     Indication: Asthma
     Route: 065
  2. VALSARTAN [Suspect]
     Active Substance: VALSARTAN
     Route: 065
  3. MELOXICAM [Suspect]
     Active Substance: MELOXICAM
     Route: 065
  4. BACLOFEN [Suspect]
     Active Substance: BACLOFEN
     Route: 065
  5. ARIPIPRAZOLE [Suspect]
     Active Substance: ARIPIPRAZOLE
     Route: 065
  6. CARVEDILOL [Suspect]
     Active Substance: CARVEDILOL
     Route: 065
  7. METFORMIN HYDROCHLORIDE [Suspect]
     Active Substance: METFORMIN HYDROCHLORIDE
     Route: 065
  8. MEGESTROL ACETATE [Suspect]
     Active Substance: MEGESTROL ACETATE
     Route: 065
  9. BUDESONIDE\FORMOTEROL\GLYCOPYRRONIUM [Suspect]
     Active Substance: BUDESONIDE\FORMOTEROL\GLYCOPYRRONIUM
     Route: 055
  10. CHLORTHALIDONE [Suspect]
     Active Substance: CHLORTHALIDONE
     Route: 065
  11. ASPIRIN [Suspect]
     Active Substance: ASPIRIN
     Route: 065
  12. NORETHINDRONE [Suspect]
     Active Substance: NORETHINDRONE
     Route: 065
  13. ESCITALOPRAM [Suspect]
     Active Substance: ESCITALOPRAM OXALATE
     Route: 065
  14. VITAMIN D [Suspect]
     Active Substance: VITAMIN D NOS
     Route: 065

REACTIONS (7)
  - Fall [Unknown]
  - Fatigue [Unknown]
  - Oedema peripheral [Unknown]
  - Sinus operation [Unknown]
  - Mucous stools [Unknown]
  - Oxygen saturation abnormal [Unknown]
  - Blood pressure increased [Unknown]
